FAERS Safety Report 7874941-7 (Version None)
Quarter: 2011Q4

REPORT INFORMATION
  Report Type: 
  Country: None (occurrence: None)
  Receive Date: 20111031
  Receipt Date: 20111025
  Transmission Date: 20120403
  Serious: Yes (Hospitalization)
  Sender: FDA-Public Use
  Company Number: FR-JNJFOC-20111009801

PATIENT
  Sex: Male

DRUGS (4)
  1. DEXAMETHASONE [Concomitant]
     Indication: MULTIPLE MYELOMA
     Route: 065
  2. DOXORUBICIN HYDROCHLORIDE [Suspect]
     Indication: MULTIPLE MYELOMA
     Route: 042
  3. RIFAMPIN AND ISONIAZID [Suspect]
     Indication: TUBERCULOSIS
     Route: 048
     Dates: start: 20101203, end: 20110223
  4. VELCADE [Suspect]
     Indication: MULTIPLE MYELOMA
     Route: 042
     Dates: start: 20101104, end: 20110516

REACTIONS (1)
  - BLOOD IMMUNOGLOBULIN G INCREASED [None]
